FAERS Safety Report 5262284-X (Version None)
Quarter: 2007Q1

REPORT INFORMATION
  Report Type: 
  Country: None (occurrence: None)
  Receive Date: 20070312
  Receipt Date: 20070228
  Transmission Date: 20070707
  Serious: No
  Sender: FDA-Public Use
  Company Number: 2006UW08267

PATIENT
  Sex: Female
  Weight: 68.2 kg

DRUGS (2)
  1. SEROQUEL [Suspect]
     Indication: MENTAL DISABILITY
     Route: 048
     Dates: start: 20030101, end: 20060101
  2. ZYPREXA [Concomitant]

REACTIONS (1)
  - DIABETES MELLITUS [None]
